FAERS Safety Report 7583266-9 (Version None)
Quarter: 2011Q2

REPORT INFORMATION
  Report Type: 
  Country: None (occurrence: None)
  Receive Date: 20110630
  Receipt Date: 20110620
  Transmission Date: 20111010
  Serious: Yes (Hospitalization)
  Sender: FDA-Public Use
  Company Number: SK-ACTELION-A-CH2011-50727

PATIENT
  Age: 49 Year
  Sex: Female

DRUGS (7)
  1. TRACLEER [Suspect]
     Indication: PULMONARY ARTERIAL HYPERTENSION
     Dosage: 250 MG, QD
     Route: 048
  2. WARFARIN SODIUM [Concomitant]
  3. ALLOPURINOL [Concomitant]
  4. BROMAZEPAM [Concomitant]
  5. TRACLEER [Suspect]
     Dosage: 125 MG, QD
     Route: 048
     Dates: start: 20060101
  6. PEFLOXACIN [Concomitant]
  7. AMLODIPINE [Concomitant]

REACTIONS (17)
  - HYPERURICAEMIA [None]
  - JUGULAR VEIN DISTENSION [None]
  - DILATATION VENTRICULAR [None]
  - ASPARTATE AMINOTRANSFERASE INCREASED [None]
  - PULMONARY ARTERIAL HYPERTENSION [None]
  - CONDITION AGGRAVATED [None]
  - LIVER DISORDER [None]
  - GAMMA-GLUTAMYLTRANSFERASE INCREASED [None]
  - TRICUSPID VALVE INCOMPETENCE [None]
  - HYPOPERFUSION [None]
  - DYSPNOEA [None]
  - BLOOD CREATININE INCREASED [None]
  - RIGHT VENTRICULAR DYSFUNCTION [None]
  - PERICARDIAL EFFUSION [None]
  - ALANINE AMINOTRANSFERASE INCREASED [None]
  - HYPOXIA [None]
  - BLOOD UREA INCREASED [None]
